FAERS Safety Report 8201084-5 (Version None)
Quarter: 2012Q1

REPORT INFORMATION
  Report Type: 
  Country: None (occurrence: None)
  Receive Date: 20120312
  Receipt Date: 20120130
  Transmission Date: 20120608
  Serious: No
  Sender: FDA-Public Use
  Company Number: US-ABBOTT-12P-163-0900676-00

PATIENT
  Sex: Female

DRUGS (2)
  1. SAFYRAL [Concomitant]
     Indication: PRODUCT USED FOR UNKNOWN INDICATION
  2. LUPRON DEPOT [Suspect]
     Indication: ENDOMETRIOSIS
     Dates: start: 20111028

REACTIONS (4)
  - METRORRHAGIA [None]
  - HOT FLUSH [None]
  - PAIN [None]
  - MOOD SWINGS [None]
